FAERS Safety Report 7285547-5 (Version None)
Quarter: 2011Q1

REPORT INFORMATION
  Report Type: 
  Country: None (occurrence: None)
  Receive Date: 20110210
  Receipt Date: 20110205
  Transmission Date: 20110831
  Serious: Yes (Hospitalization)
  Sender: FDA-Public Use
  Company Number: FR-ABBOTT-11P-056-0703450-00

PATIENT
  Age: 45 Year
  Sex: Male

DRUGS (8)
  1. CORTICOIDS [Interacting]
     Dates: start: 20110101
  2. INTELENCE [Suspect]
     Indication: HIV INFECTION
  3. NORVIR [Interacting]
     Indication: HIV INFECTION
  4. SOLUPRED [Interacting]
     Indication: BRONCHITIS
     Dosage: 1 MG/KG/DAY
     Dates: start: 20101001
  5. SOLUPRED [Interacting]
     Dates: start: 20110101
  6. PREZISTA [Suspect]
     Indication: HIV INFECTION
  7. TRUVADA [Suspect]
     Indication: HIV INFECTION
  8. CORTICOIDS [Interacting]
     Indication: BRONCHITIS
     Route: 045
     Dates: start: 20101001

REACTIONS (2)
  - BRONCHITIS [None]
  - CUSHING'S SYNDROME [None]
